FAERS Safety Report 22290614 (Version 2)
Quarter: 2023Q2

REPORT INFORMATION
  Report Type: Other
  Country: US (occurrence: US)
  Receive Date: 20230505
  Receipt Date: 20230601
  Transmission Date: 20230722
  Serious: Yes (Hospitalization, Other)
  Sender: FDA-Public Use
  Company Number: US-INTERCEPT-PM2023000850

PATIENT
  Age: 76 Year
  Sex: Female
  Weight: 68.027 kg

DRUGS (13)
  1. OCALIVA [Suspect]
     Active Substance: OBETICHOLIC ACID
     Indication: Primary biliary cholangitis
     Dosage: 5 MILLIGRAM, 2X/WK
     Route: 048
     Dates: start: 20190621, end: 2019
  2. OCALIVA [Suspect]
     Active Substance: OBETICHOLIC ACID
     Dosage: 5 MILLIGRAM, QD
     Route: 048
     Dates: start: 20190621, end: 201908
  3. OCALIVA [Suspect]
     Active Substance: OBETICHOLIC ACID
     Dosage: 10 MILLIGRAM, QD
     Route: 048
     Dates: start: 2019, end: 2019
  4. OCALIVA [Suspect]
     Active Substance: OBETICHOLIC ACID
     Dosage: 5 MILLIGRAM, 2X/WK
     Route: 048
     Dates: start: 201908
  5. OCALIVA [Suspect]
     Active Substance: OBETICHOLIC ACID
     Dosage: 5 MG, 2X/WK, TUESDAY, FRIDAY
     Route: 048
     Dates: start: 202001
  6. URSODIOL [Concomitant]
     Active Substance: URSODIOL
     Dosage: 300 MILLIGRAM, BID
     Route: 048
  7. VITAMIN D2 [Concomitant]
     Active Substance: ERGOCALCIFEROL
  8. PROPRANOLOL HYDROCHLORIDE [Concomitant]
     Active Substance: PROPRANOLOL HYDROCHLORIDE
     Dosage: 20 MILLIGRAM, BID
     Route: 048
  9. OMEPRAZOLE [Concomitant]
     Active Substance: OMEPRAZOLE
     Dosage: UNK
     Dates: end: 202304
  10. LOSARTAN POTASSIUM [Concomitant]
     Active Substance: LOSARTAN POTASSIUM
     Dosage: UNK
     Dates: end: 202304
  11. AMLODIPINE BESYLATE [Concomitant]
     Active Substance: AMLODIPINE BESYLATE
     Dosage: UNK
     Dates: end: 202304
  12. PROTONIX [Concomitant]
     Active Substance: PANTOPRAZOLE SODIUM
     Dosage: 40 MILLIGRAM, BID
     Route: 048
  13. CHOLECALCIFEROL [Concomitant]
     Active Substance: CHOLECALCIFEROL
     Dosage: 1000 INTERNATIONAL UNIT, QD
     Route: 048

REACTIONS (16)
  - Upper gastrointestinal haemorrhage [Recovered/Resolved]
  - Acute kidney injury [Not Recovered/Not Resolved]
  - Blood loss anaemia [Recovering/Resolving]
  - Mallory-Weiss syndrome [Recovered/Resolved]
  - Hypervolaemia [Recovered/Resolved]
  - Ascites [Recovered/Resolved]
  - Hepatic cirrhosis [Not Recovered/Not Resolved]
  - Gastritis [Unknown]
  - Malnutrition [Not Recovered/Not Resolved]
  - Transfusion [Recovered/Resolved]
  - Varices oesophageal [Not Recovered/Not Resolved]
  - Sarcopenia [Not Recovered/Not Resolved]
  - Splenomegaly [Unknown]
  - Paracentesis [Recovered/Resolved]
  - Hepatic lesion [Not Recovered/Not Resolved]
  - Off label use [Not Recovered/Not Resolved]

NARRATIVE: CASE EVENT DATE: 20220901
